FAERS Safety Report 10154249 (Version 1)
Quarter: 2014Q2

REPORT INFORMATION
  Report Type: Spontaneous
  Country: US (occurrence: US)
  Receive Date: 20140506
  Receipt Date: 20140506
  Transmission Date: 20141212
  Serious: No
  Sender: FDA-Public Use
  Company Number: US-PFIZER INC-2014120440

PATIENT
  Sex: Male

DRUGS (2)
  1. NARDIL [Suspect]
     Indication: DEPRESSION
     Dosage: UNK
  2. MAGNESIUM CITRATE [Concomitant]
     Dosage: UNK

REACTIONS (2)
  - Constipation [Unknown]
  - Fatigue [Unknown]
